FAERS Safety Report 14991256 (Version 1)
Quarter: 2018Q2

REPORT INFORMATION
  Report Type: Spontaneous
  Country: US (occurrence: US)
  Receive Date: 20180608
  Receipt Date: 20180608
  Transmission Date: 20180711
  Serious: Yes (Other)
  Sender: FDA-Public Use
  Company Number: US-ARBOR PHARMACEUTICALS, LLC-US-2018ARB000622

PATIENT

DRUGS (1)
  1. HORIZANT [Suspect]
     Active Substance: GABAPENTIN ENACARBIL
     Indication: PRODUCT USED FOR UNKNOWN INDICATION
     Dosage: UNK

REACTIONS (7)
  - Atrial fibrillation [Unknown]
  - Dyskinesia [Unknown]
  - Asthma [Unknown]
  - Pain [Unknown]
  - Insomnia [Unknown]
  - Withdrawal syndrome [Unknown]
  - Palpitations [Unknown]
